FAERS Safety Report 8773704 (Version 1)
Quarter: 2012Q4

REPORT INFORMATION
  Report Type: 
  Country: US (occurrence: US)
  Receive Date: 20120907
  Receipt Date: 20120907
  Transmission Date: 20130627
  Serious: No
  Sender: FDA-Public Use
  Company Number: US-PFIZER INC-2012218193

PATIENT
  Age: 54 Year
  Sex: Female
  Weight: 73.47 kg

DRUGS (5)
  1. LYRICA [Suspect]
     Indication: DIABETIC NEUROPATHY
     Dosage: 150 mg, 2x/day
     Route: 048
     Dates: start: 2010
  2. NORVASC [Concomitant]
     Indication: HYPERTENSION
     Dosage: UNK
  3. PRAVACHOL [Concomitant]
     Dosage: UNK
  4. TOPROL XL [Concomitant]
     Indication: HYPERTENSION
     Dosage: UNK
  5. FOLIC ACID [Concomitant]
     Dosage: UNK

REACTIONS (6)
  - Limb discomfort [Recovering/Resolving]
  - Discomfort [Recovering/Resolving]
  - Hypoaesthesia [Recovering/Resolving]
  - Hypoaesthesia [Recovering/Resolving]
  - Pain in extremity [Recovering/Resolving]
  - Burning sensation [Recovering/Resolving]
